FAERS Safety Report 12395791 (Version 6)
Quarter: 2017Q1

REPORT INFORMATION
  Report Type: Spontaneous
  Country: US (occurrence: US)
  Receive Date: 20160523
  Receipt Date: 20170126
  Transmission Date: 20170428
  Serious: No
  Sender: FDA-Public Use
  Company Number: US-ACTELION-A-US2016-136384

PATIENT
  Age: 82 Year
  Sex: Female
  Weight: 72.56 kg

DRUGS (5)
  1. UPTRAVI [Suspect]
     Active Substance: SELEXIPAG
     Indication: PULMONARY HYPERTENSION
     Dosage: 800 MCG, BID
     Route: 048
     Dates: start: 20160429
  2. UPTRAVI [Suspect]
     Active Substance: SELEXIPAG
     Dosage: 200 MCG, BID
     Route: 048
     Dates: start: 20160429
  3. UPTRAVI [Suspect]
     Active Substance: SELEXIPAG
     Dosage: 1000 MCG, BID
     Route: 048
     Dates: start: 20160429
  4. ADCIRCA [Concomitant]
     Active Substance: TADALAFIL
  5. REMODULIN [Concomitant]
     Active Substance: TREPROSTINIL

REACTIONS (13)
  - Myalgia [Unknown]
  - Pruritus generalised [Unknown]
  - Hypersomnia [Unknown]
  - Fatigue [Unknown]
  - Disease progression [Unknown]
  - Pain [Unknown]
  - Musculoskeletal pain [Unknown]
  - Pulmonary arterial hypertension [Unknown]
  - Back pain [Unknown]
  - Arthralgia [Unknown]
  - Diarrhoea [Unknown]
  - Pain in extremity [Unknown]
  - Anaemia [Unknown]
